FAERS Safety Report 10686749 (Version 2)
Quarter: 2015Q1

REPORT INFORMATION
  Report Type: Spontaneous
  Country: JP (occurrence: JP)
  Receive Date: 20150101
  Receipt Date: 20150101
  Transmission Date: 20150720
  Serious: Yes (Death, Other)
  Sender: FDA-Public Use
  Company Number: PHHY2014JP165429

PATIENT
  Age: 73 Year
  Sex: Male
  Weight: 48 kg

DRUGS (2)
  1. CARBOPLATIN. [Suspect]
     Active Substance: CARBOPLATIN
     Indication: BLADDER CANCER
     Route: 065
  2. PACLITAXEL. [Suspect]
     Active Substance: PACLITAXEL
     Indication: BLADDER CANCER
     Dosage: 175 MG/M2, UNK
     Route: 065

REACTIONS (9)
  - Platelet count decreased [Unknown]
  - General physical health deterioration [Fatal]
  - Hydronephrosis [Unknown]
  - Bladder cancer [Fatal]
  - Ileus [Unknown]
  - Malignant neoplasm progression [Unknown]
  - Renal impairment [Unknown]
  - Neutrophil count decreased [Unknown]
  - Malignant ascites [Fatal]
